FAERS Safety Report 9516571 (Version 1)
Quarter: 2013Q3

REPORT INFORMATION
  Report Type: Spontaneous
  Country: US (occurrence: None)
  Receive Date: 20130910
  Receipt Date: 20130910
  Transmission Date: 20140515
  Serious: Yes (Death)
  Sender: FDA-Public Use
  Company Number: None

PATIENT
  Age: 29 Year
  Sex: Female

DRUGS (1)
  1. ZOFRAN [Suspect]

REACTIONS (12)
  - Heart rate increased [None]
  - Nausea [None]
  - Toxic epidermal necrolysis [None]
  - White blood cell count decreased [None]
  - Vulvovaginal candidiasis [None]
  - Hypotension [None]
  - Eye swelling [None]
  - Swollen tongue [None]
  - Cardiac arrest [None]
  - Skin lesion [None]
  - Exposure during pregnancy [None]
  - Hypovolaemia [None]
